FAERS Safety Report 9697410 (Version 1)
Quarter: 2013Q4

REPORT INFORMATION
  Report Type: Spontaneous
  Country: US (occurrence: None)
  Receive Date: 20131119
  Receipt Date: 20131119
  Transmission Date: 20140711
  Serious: No
  Sender: FDA-Public Use
  Company Number: None

PATIENT
  Age: 48 Year
  Sex: Female
  Weight: 62.6 kg

DRUGS (4)
  1. FLONASE [Suspect]
     Indication: MULTIPLE ALLERGIES
     Dosage: 2 SPRAYS IN EACH NOSTRIL ONE DAILY INHLATION
     Route: 055
     Dates: start: 20131008, end: 20131116
  2. SUMATRIPTAN SUCCINATE [Concomitant]
  3. ONE A DAY VITAMIN [Concomitant]
  4. BIOTIN AND MAGNESIUM SUPPLEMENTS [Concomitant]

REACTIONS (4)
  - Anxiety [None]
  - Insomnia [None]
  - Heart rate increased [None]
  - Muscular weakness [None]
